FAERS Safety Report 9962170 (Version 1)
Quarter: 2014Q1

REPORT INFORMATION
  Report Type: Report from Study
  Country: US (occurrence: US)
  Receive Date: 20140305
  Receipt Date: 20140305
  Transmission Date: 20141002
  Serious: No
  Sender: FDA-Public Use
  Company Number: US-ABBVIE-13P-163-1110489-00

PATIENT
  Age: 51 Year
  Sex: Female

DRUGS (6)
  1. HUMIRA [Suspect]
     Indication: PRODUCT USED FOR UNKNOWN INDICATION
     Dosage: LOADING DOSE
     Dates: start: 20130620
  2. LOTREL [Concomitant]
     Indication: HYPERTENSION
     Dosage: 5/20 MG 2 A DAY
  3. LEXAPRO [Concomitant]
     Indication: DEPRESSION
     Dosage: 10 MG 1 A DAY
  4. ARMOUR THYROID [Concomitant]
     Indication: HYPOTHYROIDISM
     Dosage: 60 MG 1 A DAY
  5. KLONOPIN [Concomitant]
     Indication: PANIC ATTACK
     Dosage: 5 MCG 1 A DAY
  6. KLONOPIN [Concomitant]
     Indication: ANXIETY

REACTIONS (3)
  - Fatigue [Not Recovered/Not Resolved]
  - Feeling of body temperature change [Not Recovered/Not Resolved]
  - Cold sweat [Not Recovered/Not Resolved]
